FAERS Safety Report 9943242 (Version 2)
Quarter: 2014Q1

REPORT INFORMATION
  Report Type: Report from Study
  Country: DE (occurrence: DE)
  Receive Date: 20140303
  Receipt Date: 20140314
  Transmission Date: 20141002
  Serious: Yes (Hospitalization)
  Sender: FDA-Public Use
  Company Number: DE-GLAXOSMITHKLINE-B0973560A

PATIENT
  Sex: Female
  Weight: 73 kg

DRUGS (3)
  1. LAPATINIB [Suspect]
     Indication: HER-2 POSITIVE BREAST CANCER
     Dosage: 750MG PER DAY
     Route: 048
     Dates: start: 20131205, end: 20140225
  2. PACLITAXEL [Suspect]
     Indication: HER-2 POSITIVE BREAST CANCER
     Dosage: 150MG WEEKLY
     Route: 042
     Dates: start: 20131205
  3. TRASTUZUMAB [Suspect]
     Indication: HER-2 POSITIVE BREAST CANCER
     Dosage: 156MG WEEKLY
     Route: 042
     Dates: start: 20131205

REACTIONS (1)
  - Cholecystitis [Recovered/Resolved]
